FAERS Safety Report 14655870 (Version 4)
Quarter: 2018Q4

REPORT INFORMATION
  Report Type: Spontaneous
  Country: DE (occurrence: DE)
  Receive Date: 20180319
  Receipt Date: 20181023
  Transmission Date: 20190204
  Serious: Yes (Hospitalization, Other)
  Sender: FDA-Public Use
  Company Number: DE-TEVA-2018-DE-867305

PATIENT
  Age: 53 Year
  Sex: Male

DRUGS (9)
  1. TAMSULOSIN ABZ 0,4 MG HARTKAPSELN MIT VERAENDERTER WIRKSTOFFFREISETZUN [Suspect]
     Active Substance: TAMSULOSIN
     Dosage: CONTINUATION AFTER ADVERSE EVENTS WERE RECOVERED
     Route: 048
     Dates: start: 20180303, end: 20180303
  2. PANTOPRAZOL [Concomitant]
     Active Substance: PANTOPRAZOLE SODIUM
     Route: 048
  3. TAMSULOSIN ABZ 0,4 MG HARTKAPSELN MIT VERAENDERTER WIRKSTOFFFREISETZUN [Suspect]
     Active Substance: TAMSULOSIN
     Indication: BENIGN PROSTATIC HYPERPLASIA
     Dosage: TAKEN THE FIRST TIME
     Route: 048
     Dates: start: 20180301, end: 20180301
  4. ATACAND 32 [Concomitant]
  5. ALVESCO [Concomitant]
     Active Substance: CICLESONIDE
  6. VENTOLAIR [Concomitant]
     Active Substance: BECLOMETHASONE DIPROPIONATE
     Route: 055
  7. LERCANIDIPIN 10 [Concomitant]
     Active Substance: LERCANIDIPINE
  8. SULFASALAZIN 500 [Concomitant]
  9. ELIQUIS [Concomitant]
     Active Substance: APIXABAN
     Route: 065

REACTIONS (10)
  - Visual impairment [Recovered/Resolved]
  - Illusion [Recovered/Resolved]
  - Dyspnoea [Recovered/Resolved]
  - Cardiovascular disorder [Recovered/Resolved]
  - Hyperhidrosis [Recovered/Resolved]
  - Loss of consciousness [Recovered/Resolved]
  - Vision blurred [Recovered/Resolved]
  - Dizziness [Recovered/Resolved]
  - Blood pressure systolic decreased [Recovered/Resolved]
  - Syncope [Recovered/Resolved]

NARRATIVE: CASE EVENT DATE: 20180301
